FAERS Safety Report 20085712 (Version 2)
Quarter: 2022Q1

REPORT INFORMATION
  Report Type: Report from Study
  Country: FR (occurrence: FR)
  Receive Date: 20211118
  Receipt Date: 20220125
  Transmission Date: 20220423
  Serious: Yes (Hospitalization)
  Sender: FDA-Public Use
  Company Number: FR-TAKEDA-2021TUS071562

PATIENT
  Age: 7 Year
  Sex: Female

DRUGS (12)
  1. TEDUGLUTIDE [Suspect]
     Active Substance: TEDUGLUTIDE
     Indication: Short-bowel syndrome
     Dosage: 1 MILLIGRAM, QD
     Route: 065
     Dates: start: 20190910
  2. TEDUGLUTIDE [Suspect]
     Active Substance: TEDUGLUTIDE
     Indication: Short-bowel syndrome
     Dosage: 1 MILLIGRAM, QD
     Route: 065
     Dates: start: 20190910
  3. TEDUGLUTIDE [Suspect]
     Active Substance: TEDUGLUTIDE
     Indication: Short-bowel syndrome
     Dosage: 1 MILLIGRAM, QD
     Route: 065
     Dates: start: 20190910
  4. TEDUGLUTIDE [Suspect]
     Active Substance: TEDUGLUTIDE
     Indication: Short-bowel syndrome
     Dosage: 1 MILLIGRAM, QD
     Route: 065
     Dates: start: 20190910
  5. AMIKACIN SULFATE [Concomitant]
     Active Substance: AMIKACIN SULFATE
     Indication: Pyelonephritis
     Dosage: 20 MILLIGRAM/KILOGRAM, QD
     Route: 042
     Dates: start: 20191224, end: 20191229
  6. BACTRIM [Concomitant]
     Active Substance: SULFAMETHOXAZOLE\TRIMETHOPRIM
     Indication: Urinary tract infection
     Dosage: 30 MILLIGRAM/KILOGRAM, BID
     Route: 048
     Dates: start: 20191212, end: 20191217
  7. BACTRIM [Concomitant]
     Active Substance: SULFAMETHOXAZOLE\TRIMETHOPRIM
     Dosage: 0.50 DOSAGE FORM, QD
     Route: 048
     Dates: start: 20211028
  8. CEFOTAXIME [Concomitant]
     Active Substance: CEFOTAXIME SODIUM
     Indication: Pyrexia
     Dosage: 1 INTERNATIONAL UNIT, QD
     Route: 042
     Dates: start: 20190902, end: 20190903
  9. VANCOMYCIN [Concomitant]
     Active Substance: VANCOMYCIN
     Indication: Pyrexia
     Dosage: 1 INTERNATIONAL UNIT, QD
     Route: 042
     Dates: start: 20190902, end: 20190903
  10. OMEPRAZOLE [Concomitant]
     Active Substance: OMEPRAZOLE
     Indication: Gastrointestinal bacterial infection
     Dosage: 20 MILLIGRAM, QD
     Route: 048
     Dates: start: 20211028
  11. URSODIOL [Concomitant]
     Active Substance: URSODIOL
     Indication: Cholestasis
     Dosage: 4 MILLILITER, BID
     Route: 048
     Dates: start: 20210703
  12. QUESTRAN [Concomitant]
     Active Substance: CHOLESTYRAMINE
     Indication: Hypercholesterolaemia
     Dosage: 1.30 GRAM, BID
     Route: 048
     Dates: start: 20211028

REACTIONS (1)
  - Respiratory tract infection viral [Recovered/Resolved]

NARRATIVE: CASE EVENT DATE: 20200122
